FAERS Safety Report 25836034 (Version 1)
Quarter: 2025Q3

REPORT INFORMATION
  Report Type: Spontaneous
  Country: US (occurrence: None)
  Receive Date: 20250922
  Receipt Date: 20250922
  Transmission Date: 20251020
  Serious: Yes (Other)
  Sender: FDA-CTU
  Company Number: None

PATIENT
  Age: 49 Year
  Sex: Male
  Weight: 87.75 kg

DRUGS (8)
  1. NEMLUVIO [Suspect]
     Active Substance: NEMOLIZUMAB-ILTO
     Indication: Neurodermatitis
     Route: 050
     Dates: start: 20250525
  2. JARDIANCE [Concomitant]
     Active Substance: EMPAGLIFLOZIN
  3. LYRICA [Concomitant]
     Active Substance: PREGABALIN
  4. CYCLOBENZAPRINE [Concomitant]
     Active Substance: CYCLOBENZAPRINE
  5. CLOBETASOL [Concomitant]
     Active Substance: CLOBETASOL
  6. NEMLUVIO [Concomitant]
     Active Substance: NEMOLIZUMAB-ILTO
  7. DOCUSATE [Concomitant]
     Active Substance: DOCUSATE
  8. ALKA-SELTZER [Concomitant]
     Active Substance: ANHYDROUS CITRIC ACID\ASPIRIN\SODIUM BICARBONATE

REACTIONS (12)
  - Inappropriate schedule of product administration [None]
  - Neurodermatitis [None]
  - Condition aggravated [None]
  - Infection [None]
  - Skin lesion [None]
  - Pain [None]
  - Product distribution issue [None]
  - Product temperature excursion issue [None]
  - Product communication issue [None]
  - Rash [None]
  - Panic attack [None]
  - Stress [None]

NARRATIVE: CASE EVENT DATE: 20250911
